FAERS Safety Report 23904247 (Version 1)
Quarter: 2024Q2

REPORT INFORMATION
  Report Type: Spontaneous
  Country: ES (occurrence: ES)
  Receive Date: 20240527
  Receipt Date: 20240527
  Transmission Date: 20240716
  Serious: Yes (Death, Hospitalization)
  Sender: FDA-Public Use
  Company Number: None

PATIENT
  Age: 70 Year
  Sex: Male

DRUGS (2)
  1. GEMCITABINE HYDROCHLORIDE [Suspect]
     Active Substance: GEMCITABINE HYDROCHLORIDE
     Indication: Prostate cancer
     Route: 065
     Dates: start: 20220531, end: 202205
  2. CARBOPLATIN [Suspect]
     Active Substance: CARBOPLATIN
     Indication: Prostate cancer
     Route: 065
     Dates: start: 20220518, end: 202205

REACTIONS (3)
  - Neutropenia [Fatal]
  - Pancytopenia [Fatal]
  - Rash [Unknown]

NARRATIVE: CASE EVENT DATE: 20220531
